FAERS Safety Report 9601098 (Version 2)
Quarter: 2013Q4

REPORT INFORMATION
  Report Type: Spontaneous
  Country: US (occurrence: US)
  Receive Date: 20131004
  Receipt Date: 20131004
  Transmission Date: 20140711
  Serious: No
  Sender: FDA-Public Use
  Company Number: US-AMGEN-USASP2013032840

PATIENT
  Age: 56 Year
  Sex: Female
  Weight: 72.11 kg

DRUGS (1)
  1. ENBREL [Suspect]
     Indication: PSORIASIS
     Dosage: 50 MG, 2 TIMES/WK
     Route: 058
     Dates: start: 20130513

REACTIONS (14)
  - Fatigue [Unknown]
  - Feeling abnormal [Not Recovered/Not Resolved]
  - Visual acuity reduced [Unknown]
  - Dry mouth [Unknown]
  - Back pain [Unknown]
  - Rash [Unknown]
  - Headache [Not Recovered/Not Resolved]
  - Dyskinesia [Unknown]
  - Rheumatoid arthritis [Unknown]
  - Psoriatic arthropathy [Unknown]
  - Spinal pain [Unknown]
  - Tenderness [Unknown]
  - Areflexia [Unknown]
  - Musculoskeletal pain [Unknown]
